FAERS Safety Report 8660761 (Version 2)
Quarter: 2013Q4

REPORT INFORMATION
  Report Type: Spontaneous
  Country: US (occurrence: US)
  Receive Date: 20120711
  Receipt Date: 20131101
  Transmission Date: 20140711
  Serious: No
  Sender: FDA-Public Use
  Company Number: US-009507513-1207USA000402

PATIENT
  Age: 56 Year
  Sex: Female

DRUGS (4)
  1. JANUVIA [Suspect]
     Indication: TYPE 2 DIABETES MELLITUS
     Dosage: UNK
     Route: 048
     Dates: start: 20120611
  2. GLUCOTROL [Concomitant]
  3. PRINIVIL [Concomitant]
  4. PREVACID [Concomitant]

REACTIONS (1)
  - Pain in jaw [Not Recovered/Not Resolved]
